FAERS Safety Report 14705032 (Version 1)
Quarter: 2018Q2

REPORT INFORMATION
  Report Type: Spontaneous
  Country: US (occurrence: US)
  Receive Date: 20180402
  Receipt Date: 20180402
  Transmission Date: 20180711
  Serious: No
  Sender: FDA-Public Use
  Company Number: US-SUNOVION-2018SUN001143

PATIENT
  Sex: Male

DRUGS (1)
  1. APTIOM [Suspect]
     Active Substance: ESLICARBAZEPINE ACETATE
     Indication: BENIGN NEOPLASM
     Dosage: 800 MG, QD
     Route: 048
     Dates: start: 201802

REACTIONS (2)
  - Product use in unapproved indication [Unknown]
  - Tremor [Unknown]
